FAERS Safety Report 6781757-1 (Version None)
Quarter: 2010Q2

REPORT INFORMATION
  Report Type: 
  Country: None (occurrence: None)
  Receive Date: 20100621
  Receipt Date: 20100609
  Transmission Date: 20101027
  Serious: Yes (Hospitalization)
  Sender: FDA-Public Use
  Company Number: FR-NOVOPROD-309998

PATIENT
  Age: 49 Year
  Sex: Female

DRUGS (1)
  1. ACTIVELLE [Suspect]
     Indication: HORMONE THERAPY
     Dosage: 1.5 MG, UNK
     Route: 048
     Dates: end: 20100401

REACTIONS (1)
  - TRANSIENT ISCHAEMIC ATTACK [None]
